FAERS Safety Report 21840708 (Version 1)
Quarter: 2023Q1

REPORT INFORMATION
  Report Type: Spontaneous
  Country: BE (occurrence: BE)
  Receive Date: 20230110
  Receipt Date: 20230110
  Transmission Date: 20230417
  Serious: Yes (Other)
  Sender: FDA-Public Use
  Company Number: BE-SUN PHARMACEUTICAL INDUSTRIES LTD-2020R1-262092

PATIENT
  Age: 23 Year
  Sex: Male

DRUGS (1)
  1. ACETAMINOPHEN [Suspect]
     Active Substance: ACETAMINOPHEN
     Indication: Product used for unknown indication
     Dosage: 10 GRAM, OVER A 6 HOUR PERIOD
     Route: 065

REACTIONS (4)
  - Overdose [Unknown]
  - Acute kidney injury [Not Recovered/Not Resolved]
  - Drug-induced liver injury [Unknown]
  - Renal tubular necrosis [Unknown]
